FAERS Safety Report 9514860 (Version 1)
Quarter: 2013Q1

REPORT INFORMATION
  Report Type: Spontaneous
  Country: US (occurrence: None)
  Receive Date: 20130305
  Receipt Date: 20130305
  Transmission Date: 20140127
  Serious: Yes (Other)
  Sender: FDA-Public Use
  Company Number: 163-21880-12112736

PATIENT
  Age: 69 Year
  Sex: Male

DRUGS (24)
  1. REVLIMID [Suspect]
     Indication: PLASMA CELL MYELOMA
     Dosage: 10 MG, 21 IN 28 D, PO
     Route: 048
     Dates: start: 20120121
  2. DIAZEPAM (DIAZEPAM) (UNKNOWN) (DIAZEPAM) [Concomitant]
  3. DEXAMETHASONE (DEXAMETHASONE) (UNKNOWN) [Concomitant]
  4. NITROSTAT (GLYCERYL TRINITRATE) (UNKNOWN) [Concomitant]
  5. LYRICA (PREGABALIN) (UNKNOWN) [Concomitant]
  6. ONDANSETRON (ONDANSETRON) (UNKNOWN) [Concomitant]
  7. LANSOPRAZOLE (LANSOPRAZOLE) (UNKNOWN) [Concomitant]
  8. LISINOPRIL (LISINOPRIL) (UNKNOWN) [Concomitant]
  9. METOPROLOL (METOPROLOL) (UNKNOWN) [Concomitant]
  10. OMEPRAZOLE (OMEPRAZOLE) (UNKNOWN) [Concomitant]
  11. HYDROMORPHONE (HYDROMORPHONE) (UNKNOWN) (HYDROMORPHONE) [Concomitant]
  12. ENOXAPARIN (ENOXAPARIN) (UNKNOWN) [Concomitant]
  13. IBUPROFEN (IBUPROFEN) (UNKNOWN) [Concomitant]
  14. CEFUROXIME (CEFUROXIME) (UNKNOWN) [Concomitant]
  15. OXYCONTIN (OXYCODONE HYDROCHLORIDE) (UNKNOWN [Concomitant]
  16. PLAVIX (CLOPIDOGREL SULFATE) (UNKNOWN) [Concomitant]
  17. ASPIRIN (ACETYLSALICYLIC ACID) (UNKNOWN) (ACETYLSALICYLIC ACID) [Concomitant]
  18. CLARITHROMYCIN (CLARITHROMYCIN) (UNKNOWN) [Concomitant]
  19. GABAPENTIN (GABAPENTIN) (UNKNOWN) (GABAPENTIN) [Concomitant]
  20. PRAVASTATIN (PRAVASTATIN) (UNKNOWN) [Concomitant]
  21. ZYRTEC (CETIRIZINE HYDROCHLORIDE) (UNKNOWN) [Concomitant]
  22. TYLENOL (PARACETAMOL) (UNKNOWN) [Concomitant]
  23. MULTIVITAMINS (MULTIVITAMINS) (UNKNOWN) [Concomitant]
  24. VITAMIN D (ERGOCALCIFEROL) (UNKNOWN) [Concomitant]

REACTIONS (2)
  - Back pain [None]
  - Pain in extremity [None]
